FAERS Safety Report 26205546 (Version 1)
Quarter: 2025Q4

REPORT INFORMATION
  Report Type: Spontaneous
  Country: EU (occurrence: EU)
  Receive Date: 20251228
  Receipt Date: 20251228
  Transmission Date: 20260118
  Serious: Yes (Hospitalization)
  Sender: JOHNSON AND JOHNSON
  Company Number: EU-AMK-294341

PATIENT
  Age: 60 Year
  Sex: Female
  Weight: 57 kg

DRUGS (5)
  1. RYBREVANT [Suspect]
     Active Substance: AMIVANTAMAB-VMJW
     Indication: Non-small cell lung cancer
     Dosage: 1 DOSE ?RYBREVANT 350MG; 19264693
  2. CALCIMAGON D3 UNO [Concomitant]
     Indication: Product used for unknown indication
     Dosage: CALCIMAGON D3 UNO 1XTGL
  3. LEVOTHYROXINE SODIUM [Concomitant]
     Active Substance: LEVOTHYROXINE SODIUM
     Indication: Product used for unknown indication
     Dosage: L-THYROXIN 125 MG 1X1 TBL.
  4. ATORVASTATIN [Concomitant]
     Active Substance: ATORVASTATIN
     Indication: Product used for unknown indication
     Dosage: ARTOVASTATIN 40MG 1X1 TBL.
  5. ASPIRIN [Concomitant]
     Active Substance: ASPIRIN
     Indication: Product used for unknown indication
     Dosage: ASS 100 1X1 TBL.

REACTIONS (1)
  - Syncope [Recovered/Resolved]

NARRATIVE: CASE EVENT DATE: 20251208
